FAERS Safety Report 6137409-4 (Version None)
Quarter: 2009Q1

REPORT INFORMATION
  Report Type: 
  Country: None (occurrence: None)
  Receive Date: 20090326
  Receipt Date: 20090316
  Transmission Date: 20090719
  Serious: Yes (Other)
  Sender: FDA-Public Use
  Company Number: CLO09002150

PATIENT
  Age: 7 Year
  Sex: Male
  Weight: 30.4 kg

DRUGS (3)
  1. CREST CAVITY PROTECTION KID'S TOOTHPASTE, SPARKLE FUN FLAVOR(SODIUM FL [Suspect]
     Indication: DENTAL DISORDER PROPHYLAXIS
     Dosage: 1 APPLIC, 2/DAY FOR 7 DAYS, INTRAORAL
     Route: 048
     Dates: start: 20090120, end: 20090127
  2. ALLEGRA [Concomitant]
  3. PEPCID [Concomitant]

REACTIONS (10)
  - ANAPHYLACTIC REACTION [None]
  - ASTHMA [None]
  - CONDITION AGGRAVATED [None]
  - DYSPNOEA [None]
  - FLUSHING [None]
  - LIP SWELLING [None]
  - ORAL PRURITUS [None]
  - PHARYNGEAL OEDEMA [None]
  - SWOLLEN TONGUE [None]
  - THROAT IRRITATION [None]
